FAERS Safety Report 8409328-1 (Version None)
Quarter: 2012Q2

REPORT INFORMATION
  Report Type: 
  Country: None (occurrence: None)
  Receive Date: 20120605
  Receipt Date: 20120528
  Transmission Date: 20120825
  Serious: Yes (Hospitalization)
  Sender: FDA-Public Use
  Company Number: US-BIOGENIDEC-2012BI016404

PATIENT
  Age: 63 Year
  Sex: Female

DRUGS (1)
  1. TYSABRI [Suspect]
     Indication: MULTIPLE SCLEROSIS
     Route: 042
     Dates: start: 20110921, end: 20120206

REACTIONS (5)
  - DRUG SPECIFIC ANTIBODY PRESENT [None]
  - ANKLE FRACTURE [None]
  - MOBILITY DECREASED [None]
  - FALL [None]
  - LOSS OF CONTROL OF LEGS [None]
